FAERS Safety Report 25979098 (Version 1)
Quarter: 2025Q4

REPORT INFORMATION
  Report Type: Spontaneous
  Country: US (occurrence: None)
  Receive Date: 20251029
  Receipt Date: 20251029
  Transmission Date: 20260117
  Serious: Yes (Disabling)
  Sender: FDA-CTU
  Company Number: None

PATIENT
  Age: 73 Year
  Sex: Female

DRUGS (1)
  1. IBRANCE [Suspect]
     Active Substance: PALBOCICLIB
     Indication: Breast cancer
     Dosage: OTHER FREQUENCY : ONCE DAILY FOR 21 DAYS THEN 7 DAYS OFF;?
     Route: 048

REACTIONS (5)
  - Off label use [None]
  - Liver disorder [None]
  - Therapy change [None]
  - Therapy cessation [None]
  - Drug ineffective [None]
